FAERS Safety Report 8397454-5 (Version None)
Quarter: 2012Q2

REPORT INFORMATION
  Report Type: 
  Country: None (occurrence: None)
  Receive Date: 20120529
  Receipt Date: 20120529
  Transmission Date: 20120825
  Serious: Yes (Other)
  Sender: FDA-Public Use
  Company Number: None

PATIENT
  Age: 49 Year
  Sex: Female
  Weight: 100.6985 kg

DRUGS (1)
  1. METOCLOPRAMIDE [Suspect]
     Indication: MIGRAINE
     Dosage: ONE A DAY
     Dates: start: 20120331, end: 20120401

REACTIONS (3)
  - OESOPHAGEAL CANDIDIASIS [None]
  - ANAPHYLACTIC SHOCK [None]
  - APHAGIA [None]
